FAERS Safety Report 4764883-8 (Version None)
Quarter: 2005Q3

REPORT INFORMATION
  Report Type: 
  Country: None (occurrence: None)
  Receive Date: 20050909
  Receipt Date: 20050831
  Transmission Date: 20060218
  Serious: Yes (Hospitalization)
  Sender: FDA-Public Use
  Company Number: US-JNJFOC-20050901312

PATIENT
  Age: 58 Year
  Sex: Female

DRUGS (5)
  1. TYLENOL (CAPLET) [Suspect]
  2. TYLENOL (CAPLET) [Suspect]
     Indication: PAIN
  3. DILANTIN [Concomitant]
  4. VALIUM [Concomitant]
  5. PHENOBARB [Concomitant]

REACTIONS (4)
  - ABDOMINAL PAIN [None]
  - CARDIAC VALVE DISEASE [None]
  - CHEST PAIN [None]
  - NAUSEA [None]
